FAERS Safety Report 18926753 (Version 1)
Quarter: 2021Q1

REPORT INFORMATION
  Report Type: Spontaneous
  Country: US (occurrence: US)
  Receive Date: 20210222
  Receipt Date: 20210222
  Transmission Date: 20210420
  Serious: No
  Sender: FDA-Public Use
  Company Number: None

PATIENT
  Age: 27 Year
  Sex: Female

DRUGS (1)
  1. MAVYRET [Suspect]
     Active Substance: GLECAPREVIR\PIBRENTASVIR
     Indication: CHRONIC HEPATITIS C
     Dosage: ?          OTHER DOSE:300?120 MG;?
     Route: 048
     Dates: start: 20201203, end: 20210206

REACTIONS (2)
  - Abortion spontaneous [None]
  - Exposure during pregnancy [None]

NARRATIVE: CASE EVENT DATE: 20210118
